FAERS Safety Report 18554482 (Version 1)
Quarter: 2020Q4

REPORT INFORMATION
  Report Type: Spontaneous
  Country: US (occurrence: US)
  Receive Date: 20201127
  Receipt Date: 20201127
  Transmission Date: 20210114
  Serious: No
  Sender: FDA-Public Use
  Company Number: US-LUPIN PHARMACEUTICALS INC.-2019-07945

PATIENT
  Sex: Female

DRUGS (2)
  1. LOVASTATIN TABLETS USP, 20 MG [Suspect]
     Active Substance: LOVASTATIN
     Indication: PRODUCT USED FOR UNKNOWN INDICATION
     Dosage: UNK
     Route: 065
  2. LOVASTATIN TABLETS USP, 20 MG [Suspect]
     Active Substance: LOVASTATIN
     Dosage: UNK, (NEW REFILL)
     Route: 065
     Dates: start: 20191101

REACTIONS (2)
  - Abdominal discomfort [Unknown]
  - Gastrointestinal disorder [Unknown]
